FAERS Safety Report 17485144 (Version 1)
Quarter: 2020Q1

REPORT INFORMATION
  Report Type: Spontaneous
  Country: US (occurrence: US)
  Receive Date: 20200302
  Receipt Date: 20200302
  Transmission Date: 20200409
  Serious: Yes (Hospitalization, Other)
  Sender: FDA-Public Use
  Company Number: US-009507513-2002USA008907

PATIENT
  Age: 56 Year
  Sex: Female

DRUGS (10)
  1. CITALOPRAM [Concomitant]
     Active Substance: CITALOPRAM HYDROBROMIDE
  2. LUMIGAN [Concomitant]
     Active Substance: BIMATOPROST
  3. ALBUTEROL SULFATE. [Suspect]
     Active Substance: ALBUTEROL SULFATE
     Dosage: 3 PUFFS AS NEEDED
     Route: 055
     Dates: start: 202001
  4. VALTREX [Concomitant]
     Active Substance: VALACYCLOVIR HYDROCHLORIDE
  5. PROAIR HFA [Suspect]
     Active Substance: ALBUTEROL SULFATE
     Dosage: UNK
  6. SINGULAIR [Concomitant]
     Active Substance: MONTELUKAST SODIUM
  7. ALBUTEROL SULFATE. [Suspect]
     Active Substance: ALBUTEROL SULFATE
     Dosage: 2 PUFFS, 1 OR 2 TIMES A DAY
     Route: 055
  8. ADVAIR HFA [Suspect]
     Active Substance: FLUTICASONE PROPIONATE\SALMETEROL XINAFOATE
     Dosage: UNK
  9. PROVENTIL [Suspect]
     Active Substance: ALBUTEROL
     Dosage: 2 PUFFS, 3 OR 4 TIMES A DAY
  10. CLARITIN [Concomitant]
     Active Substance: LORATADINE

REACTIONS (10)
  - Asthma [Unknown]
  - Product prescribing error [Unknown]
  - Product label confusion [Unknown]
  - Dyspnoea [Not Recovered/Not Resolved]
  - Inappropriate schedule of product administration [Unknown]
  - Drug ineffective [Unknown]
  - Circumstance or information capable of leading to medication error [Unknown]
  - Loss of consciousness [Unknown]
  - Influenza like illness [Not Recovered/Not Resolved]
  - Incorrect dose administered [Unknown]

NARRATIVE: CASE EVENT DATE: 2007
